FAERS Safety Report 12419365 (Version 3)
Quarter: 2016Q3

REPORT INFORMATION
  Report Type: Report from Study
  Country: US (occurrence: US)
  Receive Date: 20160531
  Receipt Date: 20160726
  Transmission Date: 20161109
  Serious: Yes (Death)
  Sender: FDA-Public Use
  Company Number: PHEH2016US013438

PATIENT
  Age: 65 Year
  Sex: Male
  Weight: 70 kg

DRUGS (1)
  1. ENTRESTO [Suspect]
     Active Substance: SACUBITRIL\VALSARTAN
     Indication: CARDIAC FAILURE
     Dosage: 50 MG, BID
     Route: 048
     Dates: start: 20160429

REACTIONS (5)
  - Congestive cardiomyopathy [Fatal]
  - Fluid retention [Recovering/Resolving]
  - Localised oedema [Recovered/Resolved]
  - Coronary artery disease [Fatal]
  - Face oedema [Recovered/Resolved]

NARRATIVE: CASE EVENT DATE: 20160520
